FAERS Safety Report 8904663 (Version 5)
Quarter: 2014Q2

REPORT INFORMATION
  Report Type: Spontaneous
  Country: US (occurrence: US)
  Receive Date: 20121112
  Receipt Date: 20140630
  Transmission Date: 20141212
  Serious: Yes (Hospitalization, Other)
  Sender: FDA-Public Use
  Company Number: US-009507513-1211USA003572

PATIENT
  Sex: Female
  Weight: 82.86 kg

DRUGS (3)
  1. FOSAMAX [Suspect]
     Indication: OSTEOPOROSIS
     Dosage: 10 MG, UNK
     Route: 048
     Dates: start: 1996
  2. FOSAMAX [Suspect]
     Dosage: 70 MG, UNK
     Route: 048
     Dates: end: 201104
  3. ALENDRONATE SODIUM [Suspect]
     Dosage: 70 MG, UNK
     Route: 048

REACTIONS (12)
  - Femur fracture [Recovered/Resolved]
  - Intramedullary rod insertion [Unknown]
  - Femur fracture [Unknown]
  - Intramedullary rod insertion [Unknown]
  - Myocardial infarction [Unknown]
  - Type 2 diabetes mellitus [Unknown]
  - Coronary artery disease [Unknown]
  - Hypertension [Unknown]
  - Dyslipidaemia [Unknown]
  - Vitamin D deficiency [Unknown]
  - Nasal polyps [Unknown]
  - Pain in extremity [Unknown]
